FAERS Safety Report 24033441 (Version 1)
Quarter: 2024Q3

REPORT INFORMATION
  Report Type: Spontaneous
  Country: US (occurrence: US)
  Receive Date: 20240701
  Receipt Date: 20240701
  Transmission Date: 20241016
  Serious: No
  Sender: UCB
  Company Number: US-UCBSA-2023050330

PATIENT
  Age: 58 Year
  Sex: Male

DRUGS (24)
  1. MIDAZOLAM [Suspect]
     Active Substance: MIDAZOLAM
     Indication: Nerve block
     Dosage: 0.5 MILLIGRAM
  2. MIDAZOLAM [Suspect]
     Active Substance: MIDAZOLAM
     Indication: Discomfort
     Dosage: 1 MILLIGRAM
  3. MIDAZOLAM [Suspect]
     Active Substance: MIDAZOLAM
     Indication: Off label use
  4. LIDOCAINE [Suspect]
     Active Substance: LIDOCAINE
     Indication: Discomfort
     Dosage: 2% LIDOCAINE
  5. FENTANYL [Suspect]
     Active Substance: FENTANYL\FENTANYL CITRATE
     Indication: Discomfort
     Dosage: 50 MICROGRAM
  6. EPINEPHRINE [Concomitant]
     Active Substance: EPINEPHRINE
     Indication: Haemodynamic instability
     Dosage: UNK
  7. EPINEPHRINE [Concomitant]
     Active Substance: EPINEPHRINE
     Indication: Product used for unknown indication
     Dosage: 4 MICROGRAM
  8. MILRINONE [Concomitant]
     Active Substance: MILRINONE
     Indication: Haemodynamic instability
     Dosage: UNK
  9. MILRINONE [Concomitant]
     Active Substance: MILRINONE
     Indication: Right ventricular systolic pressure decreased
     Dosage: INCREASED TO 0.5 MICROGRAM/KILOGRAM PER MINUTE
  10. MILRINONE [Concomitant]
     Active Substance: MILRINONE
     Indication: Mitral valve incompetence
     Dosage: DECREASED TO 0.375 MICROGRAM PER GRAM PER MINUTE
  11. MILRINONE [Concomitant]
     Active Substance: MILRINONE
     Indication: Tricuspid valve incompetence
  12. FUROSEMIDE [Concomitant]
     Active Substance: FUROSEMIDE
     Indication: Right ventricular systolic pressure decreased
     Dosage: UNK
  13. FUROSEMIDE [Concomitant]
     Active Substance: FUROSEMIDE
     Indication: Mitral valve incompetence
  14. FUROSEMIDE [Concomitant]
     Active Substance: FUROSEMIDE
     Indication: Tricuspid valve incompetence
  15. AMIODARONE [Concomitant]
     Active Substance: AMIODARONE
     Indication: Supraventricular tachycardia
     Dosage: 0.5 MILLIGRAM PER MINUTE
  16. AMIODARONE [Concomitant]
     Active Substance: AMIODARONE
     Indication: Atrial fibrillation
  17. AMIODARONE [Concomitant]
     Active Substance: AMIODARONE
     Indication: Product used for unknown indication
  18. DEXMEDETOMIDINE [Concomitant]
     Active Substance: DEXMEDETOMIDINE
     Indication: Product used for unknown indication
     Dosage: 0.5 MICROGRAM/KILOGRAMPER HOUR
  19. DEXMEDETOMIDINE [Concomitant]
     Active Substance: DEXMEDETOMIDINE
     Dosage: INCREASED TO 0.6 MG/ KG/H
  20. REMIFENTANIL [Concomitant]
     Active Substance: REMIFENTANIL
     Indication: Product used for unknown indication
     Dosage: 0.04 MICROGRAM PER GRAM PER MINUTE
  21. REMIFENTANIL [Concomitant]
     Active Substance: REMIFENTANIL
     Dosage: TITRATED TO 0.03 MG/KG/MIN
  22. ROPIVACAINE [Concomitant]
     Active Substance: ROPIVACAINE
     Indication: Nerve block
     Dosage: 20 ML OF 0.5% ROPIVACAINE
  23. ROPIVACAINE [Concomitant]
     Active Substance: ROPIVACAINE
     Indication: Cervical plexus block
     Dosage: 10 ML OF 0.5% ROPIVACAINE
  24. VASOPRESSIN [Concomitant]
     Active Substance: VASOPRESSIN
     Indication: Hypotension
     Dosage: 0.02 UNITS PER MINUTE

REACTIONS (2)
  - Therapeutic response unexpected [Unknown]
  - Off label use [Unknown]
